FAERS Safety Report 9788656 (Version 2)
Quarter: 2014Q1

REPORT INFORMATION
  Report Type: Spontaneous
  Country: IN (occurrence: IN)
  Receive Date: 20131230
  Receipt Date: 20140307
  Transmission Date: 20141002
  Serious: Yes (Death, Hospitalization)
  Sender: FDA-Public Use
  Company Number: IN-JNJFOC-20131216739

PATIENT
  Age: 50 Year
  Sex: Male

DRUGS (1)
  1. ITRACONAZOLE [Suspect]
     Indication: CHROMOBLASTOMYCOSIS
     Route: 065

REACTIONS (4)
  - Multi-organ failure [Fatal]
  - Respiratory distress [Unknown]
  - Colonic abscess [Unknown]
  - Drug effect decreased [Unknown]
